FAERS Safety Report 15218521 (Version 4)
Quarter: 2018Q4

REPORT INFORMATION
  Report Type: Spontaneous
  Country: BR (occurrence: BR)
  Receive Date: 20180730
  Receipt Date: 20181017
  Transmission Date: 20190204
  Serious: Yes (Hospitalization, Disabling, Other)
  Sender: FDA-Public Use
  Company Number: BR-009507513-1807BRA010328

PATIENT
  Age: 64 Year
  Sex: Female

DRUGS (1)
  1. JANUMET [Suspect]
     Active Substance: METFORMIN HYDROCHLORIDE\SITAGLIPTIN PHOSPHATE
     Indication: TYPE 2 DIABETES MELLITUS
     Dosage: 1 TABLET AT LUNCH AND 1 TABLET AT DINNER, DAILY
     Route: 048
     Dates: start: 2014

REACTIONS (12)
  - Fall [Not Recovered/Not Resolved]
  - Spinal osteoarthritis [Not Recovered/Not Resolved]
  - Fear [Unknown]
  - Cataract [Recovered/Resolved]
  - Aneurysm [Recovered/Resolved]
  - Blindness [Recovered/Resolved]
  - Orthostatic hypotension [Unknown]
  - Spinal fracture [Not Recovered/Not Resolved]
  - Blood glucose increased [Recovered/Resolved]
  - Inappropriate schedule of product administration [Unknown]
  - Product dose omission [Unknown]
  - Circumstance or information capable of leading to medication error [Unknown]

NARRATIVE: CASE EVENT DATE: 2016
